FAERS Safety Report 9104011 (Version 2)
Quarter: 2013Q1

REPORT INFORMATION
  Report Type: Spontaneous
  Country: ID (occurrence: ID)
  Receive Date: 20130219
  Receipt Date: 20130326
  Transmission Date: 20140127
  Serious: Yes (Death, Other)
  Sender: FDA-Public Use
  Company Number: ID-PFIZER INC-2013017949

PATIENT
  Age: 42 Year
  Sex: Male

DRUGS (5)
  1. DOXORUBICIN HCL [Suspect]
     Indication: LYMPHOMA
  2. CYCLOPHOSPHAMIDE [Suspect]
     Indication: LYMPHOMA
  3. VINCRISTINE [Suspect]
     Indication: LYMPHOMA
  4. PREDNISOLONE [Suspect]
     Indication: LYMPHOMA
  5. RITUXIMAB [Suspect]
     Indication: LYMPHOMA

REACTIONS (1)
  - Acute hepatic failure [Fatal]
